FAERS Safety Report 13439488 (Version 1)
Quarter: 2017Q2

REPORT INFORMATION
  Report Type: Spontaneous
  Country: PL (occurrence: PL)
  Receive Date: 20170413
  Receipt Date: 20170413
  Transmission Date: 20170830
  Serious: Yes (Other)
  Sender: FDA-Public Use
  Company Number: PL-SA-2017SA061217

PATIENT
  Age: 38 Year
  Sex: Female
  Weight: 55 kg

DRUGS (7)
  1. FASTURTEC [Suspect]
     Active Substance: RASBURICASE
     Indication: PROPHYLAXIS
     Route: 051
     Dates: start: 20170405, end: 20170405
  2. HASCOVIR [Concomitant]
     Indication: INFECTION
     Route: 048
  3. AXTIL [Concomitant]
     Indication: HYPERTENSION
     Route: 048
     Dates: start: 2016
  4. METOPROLOL TARTRATE. [Concomitant]
     Active Substance: METOPROLOL TARTRATE
     Indication: HYPERTENSION
     Route: 048
     Dates: start: 2016
  5. ESSENTIALE FORTE [Concomitant]
     Indication: PROPHYLAXIS
     Route: 048
     Dates: start: 2016
  6. TAZOCIN [Concomitant]
     Active Substance: PIPERACILLIN SODIUM\TAZOBACTAM SODIUM
     Indication: INFECTION
     Route: 042
  7. FASTURTEC [Suspect]
     Active Substance: RASBURICASE
     Indication: PROPHYLAXIS
     Route: 051
     Dates: start: 20170405, end: 20170405

REACTIONS (3)
  - Malaise [Recovered/Resolved]
  - Oedema mouth [Recovered/Resolved]
  - Dyspnoea [Recovered/Resolved]

NARRATIVE: CASE EVENT DATE: 20170405
